FAERS Safety Report 25287593 (Version 1)
Quarter: 2025Q2

REPORT INFORMATION
  Report Type: Report from Study
  Country: FR (occurrence: FR)
  Receive Date: 20250509
  Receipt Date: 20250509
  Transmission Date: 20250717
  Serious: Yes (Death, Hospitalization)
  Sender: MYLAN
  Company Number: FR-MYLANLABS-2025M1039251

PATIENT
  Age: 55 Year
  Sex: Female

DRUGS (20)
  1. VANCOMYCIN [Suspect]
     Active Substance: VANCOMYCIN
     Indication: Meningitis staphylococcal
  2. VANCOMYCIN [Suspect]
     Active Substance: VANCOMYCIN
     Route: 065
  3. VANCOMYCIN [Suspect]
     Active Substance: VANCOMYCIN
     Route: 065
  4. VANCOMYCIN [Suspect]
     Active Substance: VANCOMYCIN
  5. MEROPENEM [Suspect]
     Active Substance: MEROPENEM
     Indication: Meningitis staphylococcal
  6. MEROPENEM [Suspect]
     Active Substance: MEROPENEM
  7. MEROPENEM [Suspect]
     Active Substance: MEROPENEM
     Route: 042
  8. MEROPENEM [Suspect]
     Active Substance: MEROPENEM
     Route: 042
  9. MEROPENEM [Suspect]
     Active Substance: MEROPENEM
  10. MEROPENEM [Suspect]
     Active Substance: MEROPENEM
  11. MEROPENEM [Suspect]
     Active Substance: MEROPENEM
     Route: 065
  12. MEROPENEM [Suspect]
     Active Substance: MEROPENEM
     Route: 065
  13. DAPTOMYCIN [Suspect]
     Active Substance: DAPTOMYCIN
     Indication: Meningitis staphylococcal
  14. DAPTOMYCIN [Suspect]
     Active Substance: DAPTOMYCIN
     Route: 065
  15. DAPTOMYCIN [Suspect]
     Active Substance: DAPTOMYCIN
     Route: 065
  16. DAPTOMYCIN [Suspect]
     Active Substance: DAPTOMYCIN
  17. VORICONAZOLE [Concomitant]
     Active Substance: VORICONAZOLE
     Indication: Evidence based treatment
  18. VORICONAZOLE [Concomitant]
     Active Substance: VORICONAZOLE
     Route: 042
  19. VORICONAZOLE [Concomitant]
     Active Substance: VORICONAZOLE
     Route: 042
  20. VORICONAZOLE [Concomitant]
     Active Substance: VORICONAZOLE

REACTIONS (1)
  - Drug ineffective [Fatal]
